FAERS Safety Report 4617554-2 (Version None)
Quarter: 2005Q1

REPORT INFORMATION
  Report Type: 
  Country: None (occurrence: None)
  Receive Date: 20050324
  Receipt Date: 20050316
  Transmission Date: 20050727
  Serious: Yes (Other)
  Sender: FDA-Public Use
  Company Number: DE-JNJFOC-20050304361

PATIENT
  Age: 41 Year
  Sex: Female

DRUGS (1)
  1. TOPAMAX [Suspect]
     Route: 049

REACTIONS (8)
  - DRUG INEFFECTIVE [None]
  - FATIGUE [None]
  - HEPATIC ENZYME INCREASED [None]
  - METRORRHAGIA [None]
  - MUSCLE RUPTURE [None]
  - OFF LABEL USE [None]
  - PARAESTHESIA [None]
  - VERTIGO [None]
